FAERS Safety Report 14195950 (Version 3)
Quarter: 2018Q2

REPORT INFORMATION
  Report Type: Report from Study
  Country: US (occurrence: US)
  Receive Date: 20171116
  Receipt Date: 20180621
  Transmission Date: 20180711
  Serious: No
  Sender: FDA-Public Use
  Company Number: PHEH2017US037133

PATIENT
  Sex: Female

DRUGS (1)
  1. COSENTYX [Suspect]
     Active Substance: SECUKINUMAB
     Indication: PSORIASIS
     Dosage: 150 MG, QW
     Route: 058

REACTIONS (4)
  - Incorrect dosage administered [Unknown]
  - Malaise [Unknown]
  - Psoriasis [Unknown]
  - Wrong technique in product usage process [Unknown]
